FAERS Safety Report 17117269 (Version 1)
Quarter: 2019Q4

REPORT INFORMATION
  Report Type: Spontaneous
  Country: FR (occurrence: FR)
  Receive Date: 20191205
  Receipt Date: 20191205
  Transmission Date: 20200122
  Serious: Yes (Life-Threatening, Hospitalization)
  Sender: FDA-Public Use
  Company Number: FR-009507513-1912FRA001352

PATIENT
  Age: 86 Year
  Sex: Male
  Weight: 59 kg

DRUGS (7)
  1. METFORMIN ARROW [Suspect]
     Active Substance: METFORMIN HYDROCHLORIDE
     Indication: TYPE 2 DIABETES MELLITUS
     Dosage: 2000 MG, ONCE DAILY
     Route: 048
  2. PREVISCAN [Concomitant]
     Dosage: 10 MG, ONCE DAILY
  3. LERCANIDIPINE HYDROCHLORIDE [Concomitant]
     Active Substance: LERCANIDIPINE HYDROCHLORIDE
     Indication: ESSENTIAL HYPERTENSION
     Dosage: 20 MG, ONCE DAILY
  4. ZESTORETIC [Concomitant]
     Active Substance: HYDROCHLOROTHIAZIDE\LISINOPRIL
     Indication: ESSENTIAL HYPERTENSION
     Dosage: 1 DOSAGE FORM, 1 DAILY
  5. SITAGLIPTIN PHOSPHATE [Suspect]
     Active Substance: SITAGLIPTIN PHOSPHATE
     Indication: TYPE 2 DIABETES MELLITUS
     Dosage: 100 MG, ONCE DAILY
     Route: 048
  6. NOVO-NORM [Suspect]
     Active Substance: REPAGLINIDE
     Indication: TYPE 2 DIABETES MELLITUS
     Dosage: 2 MG, ONCE DAILY
     Route: 048
     Dates: end: 20191111
  7. URAPIDIL [Concomitant]
     Active Substance: URAPIDIL
     Indication: ESSENTIAL HYPERTENSION
     Dosage: 120 MG, ONCE DAILY

REACTIONS (1)
  - Hypoglycaemic seizure [Recovered/Resolved]

NARRATIVE: CASE EVENT DATE: 20191111
